FAERS Safety Report 16972690 (Version 1)
Quarter: 2019Q4

REPORT INFORMATION
  Report Type: Spontaneous
  Country: US (occurrence: US)
  Receive Date: 20191030
  Receipt Date: 20191030
  Transmission Date: 20200122
  Serious: No
  Sender: FDA-Public Use
  Company Number: US-009507513-1910USA015389

PATIENT
  Age: 57 Year
  Sex: Female

DRUGS (5)
  1. BELSOMRA [Suspect]
     Active Substance: SUVOREXANT
     Indication: INSOMNIA
     Dosage: ONCE AT NIGHT
     Route: 048
     Dates: start: 20190612, end: 20190712
  2. BELSOMRA [Suspect]
     Active Substance: SUVOREXANT
     Dosage: ONCE AT NIGHT
     Route: 048
     Dates: start: 20190921
  3. MIRTAZAPINE. [Concomitant]
     Active Substance: MIRTAZAPINE
  4. MELATONIN [Concomitant]
     Active Substance: MELATONIN
  5. BELSOMRA [Suspect]
     Active Substance: SUVOREXANT
     Dosage: ONCE AT NIGHT
     Route: 048
     Dates: start: 20190818, end: 20190918

REACTIONS (6)
  - Poor quality sleep [Not Recovered/Not Resolved]
  - Therapeutic product effect decreased [Unknown]
  - Headache [Not Recovered/Not Resolved]
  - Product dose omission [Unknown]
  - Ocular discomfort [Not Recovered/Not Resolved]
  - Product dose omission [Unknown]

NARRATIVE: CASE EVENT DATE: 2019
